FAERS Safety Report 9258421 (Version 2)
Quarter: 2013Q2

REPORT INFORMATION
  Report Type: Spontaneous
  Country: US (occurrence: US)
  Receive Date: 20130426
  Receipt Date: 20130430
  Transmission Date: 20140414
  Serious: Yes (Other)
  Sender: FDA-Public Use
  Company Number: US-PFIZER INC-2013128274

PATIENT
  Sex: Female

DRUGS (1)
  1. LYRICA [Suspect]
     Indication: POOR PERIPHERAL CIRCULATION
     Dosage: UNK

REACTIONS (5)
  - Suicidal ideation [Unknown]
  - Off label use [Unknown]
  - Throat tightness [Unknown]
  - Pharyngeal oedema [Unknown]
  - Fatigue [Unknown]
